FAERS Safety Report 7161703-1 (Version None)
Quarter: 2010Q4

REPORT INFORMATION
  Report Type: 
  Country: None (occurrence: None)
  Receive Date: 20101215
  Receipt Date: 20101206
  Transmission Date: 20110411
  Serious: Yes (Hospitalization)
  Sender: FDA-Public Use
  Company Number: DE-SANOFI-AVENTIS-2010SA073705

PATIENT
  Age: 47 Year
  Sex: Male

DRUGS (3)
  1. ARAVA [Suspect]
     Indication: RHEUMATOID ARTHRITIS
     Route: 065
  2. ARAVA [Suspect]
     Dosage: EVERY THREE DAYS WITH INTENTION TO WITHDRAWAL
     Route: 065
     Dates: end: 20100101
  3. ARAVA [Suspect]
     Dosage: EVERY THREE DAYS WITH INTENTION TO WITHDRAWAL
     Route: 065
     Dates: start: 20100101

REACTIONS (9)
  - ALANINE AMINOTRANSFERASE INCREASED [None]
  - ASPARTATE AMINOTRANSFERASE INCREASED [None]
  - BLOOD ALKALINE PHOSPHATASE INCREASED [None]
  - BLOOD CREATININE INCREASED [None]
  - GAMMA-GLUTAMYLTRANSFERASE INCREASED [None]
  - HEPATIC ENZYME INCREASED [None]
  - NEPHROTIC SYNDROME [None]
  - OFF LABEL USE [None]
  - PROTEIN TOTAL DECREASED [None]
